FAERS Safety Report 9402305 (Version 1)
Quarter: 2013Q3

REPORT INFORMATION
  Report Type: Spontaneous
  Country: GB (occurrence: GB)
  Receive Date: 20130716
  Receipt Date: 20130716
  Transmission Date: 20140515
  Serious: Yes (Other)
  Sender: FDA-Public Use
  Company Number: GB-JNJFOC-20130706243

PATIENT
  Sex: Female

DRUGS (2)
  1. XARELTO [Suspect]
     Indication: PRODUCT USED FOR UNKNOWN INDICATION
     Route: 048
  2. ANTIHYPERTENSIVES [Concomitant]
     Route: 065

REACTIONS (14)
  - Eye haemorrhage [Unknown]
  - Aggression [Unknown]
  - Migraine [Unknown]
  - Pruritus generalised [Unknown]
  - Ear pruritus [Unknown]
  - Anger [Unknown]
  - Abdominal distension [Unknown]
  - Micturition urgency [Unknown]
  - Local swelling [Unknown]
  - Fatigue [Unknown]
  - Memory impairment [Unknown]
  - Dyspnoea [Unknown]
  - Ageusia [Unknown]
  - Anosmia [Unknown]
